FAERS Safety Report 8117003-6 (Version None)
Quarter: 2012Q1

REPORT INFORMATION
  Report Type: 
  Country: None (occurrence: None)
  Receive Date: 20120206
  Receipt Date: 20120201
  Transmission Date: 20120608
  Serious: Yes (Other)
  Sender: FDA-Public Use
  Company Number: US-BAYER-2012-010802

PATIENT

DRUGS (1)
  1. SODIUM BICARBONATE [Suspect]
     Route: 048

REACTIONS (5)
  - LOSS OF CONSCIOUSNESS [None]
  - INSOMNIA [None]
  - HYPERHIDROSIS [None]
  - DYSPNOEA [None]
  - UNEVALUABLE EVENT [None]
